FAERS Safety Report 8487759-1 (Version None)
Quarter: 2012Q2

REPORT INFORMATION
  Report Type: 
  Country: None (occurrence: None)
  Receive Date: 20120402
  Receipt Date: 20110203
  Transmission Date: 20120825
  Serious: Yes (Other)
  Sender: FDA-Public Use
  Company Number: PHHY2010US58206

PATIENT
  Sex: Female

DRUGS (9)
  1. LEVOTHYROXINE SODIUM [Concomitant]
  2. PLAQUENIL [Concomitant]
  3. EXFORGE [Suspect]
     Dosage: 160/5 MG TABLETS
     Dates: start: 20100201
  4. VESICARE [Concomitant]
  5. POTASSIUM CHLORIDE [Concomitant]
  6. MOBIC [Concomitant]
  7. LIPITOR [Concomitant]
  8. XALATAN [Concomitant]
  9. LYRICA [Concomitant]

REACTIONS (3)
  - BLOOD PRESSURE DIASTOLIC DECREASED [None]
  - OEDEMA PERIPHERAL [None]
  - SOMNOLENCE [None]
